FAERS Safety Report 18797186 (Version 2)
Quarter: 2021Q1

REPORT INFORMATION
  Report Type: Spontaneous
  Country: US (occurrence: US)
  Receive Date: 20210127
  Receipt Date: 20210216
  Transmission Date: 20210419
  Serious: No
  Sender: FDA-Public Use
  Company Number: US-INTERSECT ENT, INC.-2105943

PATIENT
  Age: 44 Year
  Sex: Female

DRUGS (1)
  1. SINUVA [Suspect]
     Active Substance: MOMETASONE FUROATE
     Indication: NASAL POLYPS
     Route: 006
     Dates: start: 20200608, end: 20200903

REACTIONS (5)
  - Anosmia [Unknown]
  - Nasal inflammation [Unknown]
  - Rhinitis [Unknown]
  - Nasal congestion [Unknown]
  - Ageusia [Unknown]

NARRATIVE: CASE EVENT DATE: 20200820
